FAERS Safety Report 8240504-7 (Version None)
Quarter: 2012Q1

REPORT INFORMATION
  Report Type: 
  Country: None (occurrence: None)
  Receive Date: 20120328
  Receipt Date: 20120316
  Transmission Date: 20120608
  Serious: Yes (Hospitalization)
  Sender: FDA-Public Use
  Company Number: IT-ROCHE-1050354

PATIENT
  Sex: Male

DRUGS (5)
  1. FONDAPARINUX SODIUM [Concomitant]
  2. TORADOL [Suspect]
     Indication: DRUG ADMINISTRATION ERROR
  3. VENTOLIN [Concomitant]
  4. MEDROL [Concomitant]
  5. TORADOL [Suspect]
     Indication: PRODUCT USED FOR UNKNOWN INDICATION
     Route: 060
     Dates: start: 20120219, end: 20120219

REACTIONS (2)
  - ERYTHEMA [None]
  - DYSPNOEA [None]
